FAERS Safety Report 19663010 (Version 3)
Quarter: 2021Q3

REPORT INFORMATION
  Report Type: Report from Study
  Country: TH (occurrence: TH)
  Receive Date: 20210805
  Receipt Date: 20210917
  Transmission Date: 20211014
  Serious: Yes (Death, Hospitalization, Other)
  Sender: FDA-Public Use
  Company Number: TH-SEAGEN-2021SGN04061

PATIENT
  Age: 70 Year
  Sex: Male

DRUGS (1)
  1. BRENTUXIMAB VEDOTIN [Suspect]
     Active Substance: BRENTUXIMAB VEDOTIN
     Indication: HODGKIN^S DISEASE
     Dosage: 100 MILLIGRAM, Q3WEEKS
     Route: 042
     Dates: start: 20210722

REACTIONS (3)
  - Hodgkin^s disease [Fatal]
  - White blood cell count decreased [Unknown]
  - Pyrexia [Unknown]

NARRATIVE: CASE EVENT DATE: 20210906
